FAERS Safety Report 21111887 (Version 1)
Quarter: 2022Q3

REPORT INFORMATION
  Report Type: Spontaneous
  Country: US (occurrence: US)
  Receive Date: 20220721
  Receipt Date: 20220721
  Transmission Date: 20221026
  Serious: No
  Sender: FDA-Public Use
  Company Number: US-PERRIGO-21US031411

PATIENT

DRUGS (1)
  1. MINOXIDIL [Suspect]
     Active Substance: MINOXIDIL
     Indication: Alopecia
     Dosage: UNKNOWN, QD TO BID, PRN
     Route: 061

REACTIONS (4)
  - Hypertrichosis [Unknown]
  - Hair colour changes [Not Recovered/Not Resolved]
  - Off label use [Unknown]
  - Expired product administered [Unknown]

NARRATIVE: CASE EVENT DATE: 20210901
